FAERS Safety Report 9367905 (Version 1)
Quarter: 2013Q2

REPORT INFORMATION
  Report Type: Spontaneous
  Country: US (occurrence: US)
  Receive Date: 20130625
  Receipt Date: 20130625
  Transmission Date: 20140414
  Serious: No
  Sender: FDA-Public Use
  Company Number: US-ASTELLAS-2012US010645

PATIENT
  Age: 87 Year
  Sex: Female

DRUGS (1)
  1. VESICARE [Suspect]
     Indication: URGE INCONTINENCE
     Dosage: 5 MG, UID/QD
     Route: 048
     Dates: start: 20120124, end: 20120701

REACTIONS (3)
  - Lethargy [Recovered/Resolved]
  - Constipation [Recovered/Resolved]
  - Dry mouth [Recovered/Resolved]
